FAERS Safety Report 12170376 (Version 1)
Quarter: 2016Q1

REPORT INFORMATION
  Report Type: Report from Study
  Country: IT (occurrence: IT)
  Receive Date: 20160311
  Receipt Date: 20160311
  Transmission Date: 20160526
  Serious: Yes (Other)
  Sender: FDA-Public Use
  Company Number: IT-ROCHE-1724397

PATIENT
  Sex: Male

DRUGS (4)
  1. FLUOROURACIL. [Concomitant]
     Active Substance: FLUOROURACIL
  2. FOLINIC ACID [Concomitant]
     Active Substance: LEUCOVORIN
  3. AVASTIN [Suspect]
     Active Substance: BEVACIZUMAB
     Indication: COLORECTAL CANCER METASTATIC
     Route: 065
     Dates: start: 201409, end: 201601
  4. OXALIPLATIN. [Concomitant]
     Active Substance: OXALIPLATIN

REACTIONS (2)
  - Disease progression [Unknown]
  - Drug ineffective [Unknown]
